FAERS Safety Report 6166548-7 (Version None)
Quarter: 2009Q2

REPORT INFORMATION
  Report Type: 
  Country: None (occurrence: None)
  Receive Date: 20090424
  Receipt Date: 20090420
  Transmission Date: 20091009
  Serious: Yes (Death)
  Sender: FDA-Public Use
  Company Number: RU-ROCHE-628187

PATIENT
  Sex: Male
  Weight: 84 kg

DRUGS (3)
  1. CAPECITABINE [Suspect]
     Indication: GASTRIC CANCER
     Dosage: FREQUENCY REPORTED AS DAY 1-14 EVERY THREE WEEKS.
     Route: 048
     Dates: start: 20080725, end: 20090401
  2. TRASTUZUMAB [Suspect]
     Indication: GASTRIC CANCER
     Dosage: DOSE REPORTED AS 688/516 MG, FORM REPORTED AS INFUSION.
     Route: 042
     Dates: start: 20080725, end: 20090401
  3. CISPLATIN [Suspect]
     Indication: GASTRIC CANCER
     Route: 042
     Dates: start: 20080725, end: 20090401

REACTIONS (1)
  - DEATH [None]
